FAERS Safety Report 4469750-5 (Version None)
Quarter: 2004Q4

REPORT INFORMATION
  Report Type: 
  Country: None (occurrence: None)
  Receive Date: 20041005
  Receipt Date: 20040921
  Transmission Date: 20050328
  Serious: Yes (Hospitalization)
  Sender: FDA-Public Use
  Company Number: 2004SE05245

PATIENT
  Age: 60 Year
  Sex: Female
  Weight: 70 kg

DRUGS (5)
  1. AMIAS [Suspect]
     Indication: ESSENTIAL HYPERTENSION
     Dates: start: 19961201, end: 20040721
  2. PINDOLOL [Concomitant]
  3. CENTIRIZINE [Concomitant]
  4. EPILIM CHRONO [Concomitant]
  5. TRIMETHOPRIM [Concomitant]

REACTIONS (4)
  - FLUID RETENTION [None]
  - GRAND MAL CONVULSION [None]
  - HYPONATRAEMIA [None]
  - URINARY TRACT INFECTION [None]
